FAERS Safety Report 25994956 (Version 1)
Quarter: 2025Q4

REPORT INFORMATION
  Report Type: Spontaneous
  Country: CN (occurrence: CN)
  Receive Date: 20251104
  Receipt Date: 20251104
  Transmission Date: 20260118
  Serious: Yes (Other)
  Sender: BAXTER
  Company Number: None

PATIENT
  Age: 45 Year
  Sex: Female

DRUGS (4)
  1. CYCLOPHOSPHAMIDE [Suspect]
     Active Substance: CYCLOPHOSPHAMIDE
     Indication: Breast cancer female
     Dosage: 0.9 G, EVERY 3 WK (ONCE IN 21 DAYS)
     Route: 041
     Dates: start: 20251015, end: 20251015
  2. SODIUM CHLORIDE [Suspect]
     Active Substance: SODIUM CHLORIDE
     Dosage: 250 ML, EVERY 3 WK (ONCE IN 21 DAYS) (WITH CYCLOPHOSPHAMIDE)
     Route: 041
     Dates: start: 20251015, end: 20251015
  3. SODIUM CHLORIDE [Suspect]
     Active Substance: SODIUM CHLORIDE
     Dosage: 80 ML, EVERY 3 WK (ONCE IN 21 DAYS) (WITH CYCLOPHOSPHAMIDE)
     Route: 041
     Dates: start: 20251015, end: 20251015
  4. PACLITAXEL [Suspect]
     Active Substance: PACLITAXEL
     Indication: Breast cancer female
     Dosage: 400 MG, EVERY 3 WK (ONCE IN 21 DAYS)
     Route: 041
     Dates: start: 20251015, end: 20251015

REACTIONS (2)
  - Nausea [Recovering/Resolving]
  - Vomiting [Recovering/Resolving]

NARRATIVE: CASE EVENT DATE: 20251015
